FAERS Safety Report 18417593 (Version 1)
Quarter: 2020Q4

REPORT INFORMATION
  Report Type: Spontaneous
  Country: US (occurrence: US)
  Receive Date: 20201022
  Receipt Date: 20201022
  Transmission Date: 20210114
  Serious: No
  Sender: FDA-Public Use
  Company Number: US-SEATTLE GENETICS-2020SGN03305

PATIENT
  Sex: Female

DRUGS (1)
  1. TUKYSA [Suspect]
     Active Substance: TUCATINIB
     Indication: BREAST CANCER FEMALE
     Dosage: UNK, BID
     Dates: start: 20200723

REACTIONS (23)
  - Flatulence [Unknown]
  - Pruritus [Unknown]
  - Head discomfort [Unknown]
  - Headache [Unknown]
  - Decreased appetite [Unknown]
  - Fatigue [Unknown]
  - Abdominal pain [Unknown]
  - Blood potassium decreased [Unknown]
  - Paraesthesia [Unknown]
  - Scab [Unknown]
  - Nausea [Unknown]
  - Eyelid margin crusting [Unknown]
  - Constipation [Unknown]
  - Alopecia [Unknown]
  - Diarrhoea [Recovering/Resolving]
  - Radiation injury [Unknown]
  - Dizziness [Unknown]
  - Weight increased [Unknown]
  - Pain [Unknown]
  - Fluid retention [Unknown]
  - Food craving [Unknown]
  - Ingrowing nail [Unknown]
  - Asthenia [Unknown]
